FAERS Safety Report 7600473-7 (Version None)
Quarter: 2011Q3

REPORT INFORMATION
  Report Type: 
  Country: None (occurrence: None)
  Receive Date: 20110711
  Receipt Date: 20110617
  Transmission Date: 20111222
  Serious: No
  Sender: FDA-Public Use
  Company Number: US-B.I. PHARMACEUTICALS,INC./RIDGEFIELD-2011-BP-15764BP

PATIENT
  Sex: Female

DRUGS (13)
  1. PRADAXA [Suspect]
     Indication: ATRIAL FIBRILLATION
     Dosage: 300 MG
     Route: 048
     Dates: start: 20110517
  2. HYDROCHLOROTHIAZIDE [Concomitant]
     Indication: CARDIAC FAILURE CONGESTIVE
     Dosage: 1000 MG
     Route: 048
  3. HYDROCHLOROTHIAZIDE [Concomitant]
     Indication: PULMONARY HYPERTENSION
  4. PRADAXA [Suspect]
     Dosage: 150 MG
     Route: 048
  5. ALLOPURINOL [Concomitant]
     Dosage: 100 MG
     Route: 048
  6. IMDUR [Concomitant]
     Dosage: 50 MG
     Route: 048
  7. POTASSIUM CHLORIDE [Concomitant]
     Indication: ELECTROLYTE SUBSTITUTION THERAPY
     Dosage: 40 MEQ
     Route: 048
  8. LEVOXYL [Concomitant]
     Indication: THYROID DISORDER
     Dosage: 75 MCG
     Route: 048
  9. ATENOLOL [Concomitant]
     Dosage: 25 MG
     Route: 048
  10. CARDIZEM [Concomitant]
     Indication: CARDIAC FAILURE CONGESTIVE
     Dosage: 240 MG
     Route: 048
  11. VASOTEC [Concomitant]
     Indication: CARDIAC FAILURE CONGESTIVE
     Dosage: 20 MG
     Route: 048
  12. LASIX [Concomitant]
     Indication: CARDIAC FAILURE CONGESTIVE
     Dosage: 320 MG
     Route: 048
  13. THEOPHYLLINE [Concomitant]
     Indication: PULMONARY HYPERTENSION
     Dosage: 800 MG
     Route: 048

REACTIONS (2)
  - OEDEMA PERIPHERAL [None]
  - ABDOMINAL DISTENSION [None]
